FAERS Safety Report 5018696-2 (Version None)
Quarter: 2006Q2

REPORT INFORMATION
  Report Type: 
  Country: None (occurrence: None)
  Receive Date: 20060605
  Receipt Date: 20060518
  Transmission Date: 20061013
  Serious: Yes (Hospitalization)
  Sender: FDA-Public Use
  Company Number: JP-ABBOTT-06P-087-0333624-00

PATIENT
  Sex: Female
  Weight: 12.2 kg

DRUGS (8)
  1. ERYTHROCIN DRY SYRUP 10% [Suspect]
     Indication: TRACHEOBRONCHITIS MYCOPLASMAL
     Route: 048
     Dates: start: 20060509, end: 20060514
  2. PHENOBARBITAL [Suspect]
     Indication: CONVULSION
     Route: 048
     Dates: start: 20060502, end: 20060514
  3. PHENOBARBITAL [Suspect]
     Route: 054
     Dates: start: 20060428, end: 20060501
  4. KETOTIFEN FUMARATE [Concomitant]
     Indication: PRURITUS
     Route: 048
     Dates: start: 20060509, end: 20060514
  5. TIPEPIDINE HIBENZATE [Concomitant]
     Indication: COUGH
     Route: 048
     Dates: start: 20060509, end: 20060514
  6. L-CARBOCISTEINE [Concomitant]
     Indication: COUGH
     Route: 048
     Dates: start: 20060509, end: 20060514
  7. TULOBUTEROL [Concomitant]
     Indication: COUGH
     Route: 061
     Dates: start: 20060509, end: 20060514
  8. PARACETAMOL [Concomitant]
     Indication: PYREXIA
     Route: 054
     Dates: start: 20060509, end: 20060514

REACTIONS (5)
  - CONJUNCTIVAL EROSION [None]
  - CONJUNCTIVAL OEDEMA [None]
  - LIP HAEMORRHAGE [None]
  - PYREXIA [None]
  - RASH [None]
